FAERS Safety Report 19743705 (Version 1)
Quarter: 2021Q3

REPORT INFORMATION
  Report Type: Spontaneous
  Country: US (occurrence: US)
  Receive Date: 20210823
  Receipt Date: 20210823
  Transmission Date: 20211014
  Serious: No
  Sender: FDA-Public Use
  Company Number: None

PATIENT
  Age: 41 Year
  Sex: Male
  Weight: 142.2 kg

DRUGS (1)
  1. NATURALA HAIR BOOSTER BIOTIN SHAMPOO (CONTAINING KETOCONAZOLE) [Suspect]
     Active Substance: KETOCONAZOLE
     Indication: ALOPECIA
     Route: 061

REACTIONS (1)
  - Suspected product quality issue [None]
